FAERS Safety Report 10750589 (Version 1)
Quarter: 2015Q1

REPORT INFORMATION
  Report Type: Spontaneous
  Country: US (occurrence: US)
  Receive Date: 20150130
  Receipt Date: 20150130
  Transmission Date: 20150721
  Serious: Yes (Other)
  Sender: FDA-Public Use
  Company Number: US-ASTRAZENECA-2015SE07320

PATIENT
  Sex: Male

DRUGS (6)
  1. ASACOL [Concomitant]
     Active Substance: MESALAMINE
  2. ENTOCORT [Suspect]
     Active Substance: BUDESONIDE
     Route: 048
  3. SULFA [Concomitant]
     Active Substance: UNSPECIFIED INGREDIENT
  4. CIMZIA [Suspect]
     Active Substance: CERTOLIZUMAB PEGOL
     Route: 065
  5. PREDNISONE. [Concomitant]
     Active Substance: PREDNISONE
  6. 6 MP [Concomitant]
     Active Substance: MERCAPTOPURINE

REACTIONS (4)
  - Gastrointestinal pain [Unknown]
  - Neuropathy peripheral [Unknown]
  - Flatulence [Unknown]
  - Intestinal obstruction [Unknown]
